APPROVED DRUG PRODUCT: AMMONIA N 13
Active Ingredient: AMMONIA N-13
Strength: 18.8mCi-188mCi/5ML (3.75-37.5mCi/ML)
Dosage Form/Route: INJECTABLE;INTRAVENOUS
Application: A204667 | Product #001
Applicant: SOFIE CO DBA SOFIE (FKA ZEVACOR PHARMA INC)
Approved: Apr 22, 2015 | RLD: No | RS: No | Type: DISCN